FAERS Safety Report 12506624 (Version 8)
Quarter: 2017Q1

REPORT INFORMATION
  Report Type: Report from Study
  Country: None (occurrence: BE)
  Receive Date: 20160628
  Receipt Date: 20170206
  Transmission Date: 20170428
  Serious: Yes (Hospitalization)
  Sender: FDA-Public Use
  Company Number: BE-ABBVIE-16P-013-1662738-00

PATIENT
  Age: 75 Year
  Sex: Male

DRUGS (3)
  1. DUODOPA [Suspect]
     Active Substance: CARBIDOPA\LEVODOPA
     Indication: PARKINSON^S DISEASE
     Dosage: MD;5ML, CD;3.5ML/H DURING 16HRS, ED;3ML; ND;2.3ML/H DURING 8HRS
     Route: 050
     Dates: start: 20120625, end: 20120628
  2. DUODOPA [Suspect]
     Active Substance: CARBIDOPA\LEVODOPA
     Dosage: DOSAGE CONTINOUSLY MONITORED AND ADJUSTED
     Route: 050
     Dates: start: 20120628, end: 20141222
  3. DUODOPA [Suspect]
     Active Substance: CARBIDOPA\LEVODOPA
     Dosage: MD;0.9ML; CD;4ML/H DURING 16HRS: ED;2.3ML; ND;2ML/H DURING 8HRS
     Route: 050
     Dates: start: 20141222

REACTIONS (5)
  - Device issue [Recovered/Resolved]
  - General physical health deterioration [Recovering/Resolving]
  - Lung disorder [Recovered/Resolved]
  - Agitation [Unknown]
  - Pneumonia [Unknown]

NARRATIVE: CASE EVENT DATE: 20161009
